FAERS Safety Report 19902264 (Version 1)
Quarter: 2021Q3

REPORT INFORMATION
  Report Type: Spontaneous
  Country: US (occurrence: US)
  Receive Date: 20210929
  Receipt Date: 20210929
  Transmission Date: 20211014
  Serious: Yes (Hospitalization)
  Sender: FDA-Public Use
  Company Number: None

PATIENT
  Age: 4 Year
  Sex: Male

DRUGS (9)
  1. KEPPRA [Concomitant]
     Active Substance: LEVETIRACETAM
  2. SINGULAIR GRA [Concomitant]
  3. VIGABATRIN 500MG [Suspect]
     Active Substance: VIGABATRIN
     Indication: EPILEPSY
     Route: 048
     Dates: start: 20210807
  4. PROAIR HFA AER [Concomitant]
  5. CLONAZEPAM. [Concomitant]
     Active Substance: CLONAZEPAM
  6. DIESTEL ACDL [Concomitant]
  7. FLONASE ALGY SPR [Concomitant]
  8. PRILOSEC [Concomitant]
     Active Substance: OMEPRAZOLE MAGNESIUM
  9. IRON SUPPLMT [Concomitant]

REACTIONS (4)
  - Seizure [None]
  - Hand-foot-and-mouth disease [None]
  - Loss of consciousness [None]
  - Nasopharyngitis [None]

NARRATIVE: CASE EVENT DATE: 20210927
